FAERS Safety Report 18946557 (Version 2)
Quarter: 2021Q2

REPORT INFORMATION
  Report Type: Report from Study
  Country: US (occurrence: US)
  Receive Date: 20210226
  Receipt Date: 20210528
  Transmission Date: 20210717
  Serious: Yes (Hospitalization, Other)
  Sender: FDA-Public Use
  Company Number: US-BAYER-2021-085081

PATIENT
  Age: 78 Year
  Sex: Male

DRUGS (10)
  1. CHERATUSSIN [Concomitant]
     Active Substance: AMMONIUM CHLORIDE\DEXTROMETHORPHAN\SODIUM CITRATE
  2. MIRALAX [Concomitant]
     Active Substance: POLYETHYLENE GLYCOL 3350
  3. IRON [Concomitant]
     Active Substance: IRON
  4. VITRAKVI [Suspect]
     Active Substance: LAROTRECTINIB
     Indication: NEOPLASM MALIGNANT
     Dosage: 100 MG, BID
     Route: 048
     Dates: start: 20200113
  5. ATORVASTATIN CALCIUM. [Concomitant]
     Active Substance: ATORVASTATIN CALCIUM
  6. XARELTO [Concomitant]
     Active Substance: RIVAROXABAN
  7. ACYCLOVIR [ACICLOVIR] [Concomitant]
     Active Substance: ACYCLOVIR
  8. VITRAKVI [Suspect]
     Active Substance: LAROTRECTINIB
     Indication: NEOPLASM MALIGNANT
     Dosage: 100 UNK
     Route: 048
  9. DAPTOMYCIN. [Concomitant]
     Active Substance: DAPTOMYCIN
  10. TAMSULOSIN HYDROCHLORIDE. [Concomitant]
     Active Substance: TAMSULOSIN HYDROCHLORIDE

REACTIONS (3)
  - Knee arthroplasty [Not Recovered/Not Resolved]
  - Loss of consciousness [None]
  - Staphylococcal infection [Not Recovered/Not Resolved]

NARRATIVE: CASE EVENT DATE: 20210521
